FAERS Safety Report 5275535-2 (Version None)
Quarter: 2007Q1

REPORT INFORMATION
  Report Type: 
  Country: None (occurrence: None)
  Receive Date: 20061213
  Receipt Date: 20051013
  Transmission Date: 20070707
  Serious: Yes (Hospitalization)
  Sender: FDA-Public Use
  Company Number: 2005UW15397

PATIENT
  Age: 54 Year

DRUGS (1)
  1. SEROQUEL [Suspect]

REACTIONS (4)
  - OEDEMA PERIPHERAL [None]
  - PRURITUS [None]
  - RASH GENERALISED [None]
  - SWELLING FACE [None]
